FAERS Safety Report 15300672 (Version 1)
Quarter: 2018Q3

REPORT INFORMATION
  Report Type: Spontaneous
  Country: US (occurrence: US)
  Receive Date: 20180821
  Receipt Date: 20180821
  Transmission Date: 20181010
  Serious: No
  Sender: FDA-Public Use
  Company Number: US-TEVA-824261ACC

PATIENT
  Sex: Female

DRUGS (5)
  1. BENADRYL [Concomitant]
     Active Substance: DIPHENHYDRAMINE HYDROCHLORIDE
     Indication: NASOPHARYNGITIS
     Dates: start: 20171028
  2. MONTELUKAST SODIUM. [Suspect]
     Active Substance: MONTELUKAST SODIUM
     Indication: ASTHMA
  3. ALBUTEROL. [Concomitant]
     Active Substance: ALBUTEROL
  4. OTC MULTIVITAMIN [Concomitant]
  5. DEAN^S CREAM LIDOCAINE PLUS MENTHOL [Concomitant]
     Dates: start: 20171022

REACTIONS (1)
  - Drug ineffective [Unknown]
